FAERS Safety Report 7515073-7 (Version None)
Quarter: 2011Q2

REPORT INFORMATION
  Report Type: 
  Country: None (occurrence: None)
  Receive Date: 20110601
  Receipt Date: 20110527
  Transmission Date: 20111010
  Serious: Yes (Death, Other)
  Sender: FDA-Public Use
  Company Number: PHHY2011CA46657

PATIENT
  Sex: Female

DRUGS (9)
  1. ZOLEDRONIC ACID [Suspect]
     Indication: OSTEOPOROSIS
     Route: 042
     Dates: start: 20100825
  2. PERINDOPRIL ERBUMINE [Concomitant]
  3. LYRICA [Concomitant]
  4. ASPIRIN [Concomitant]
  5. LASIX [Concomitant]
  6. NORVASC [Concomitant]
  7. CALCIUM WITH VITAMIN D [Concomitant]
  8. COUMADIN [Concomitant]
  9. MONOCOR [Concomitant]

REACTIONS (5)
  - PULMONARY ALVEOLAR HAEMORRHAGE [None]
  - DEATH [None]
  - RENAL FAILURE ACUTE [None]
  - ATRIAL FIBRILLATION [None]
  - LOSS OF CONSCIOUSNESS [None]
